FAERS Safety Report 5890798-8 (Version None)
Quarter: 2008Q3

REPORT INFORMATION
  Report Type: 
  Country: None (occurrence: None)
  Receive Date: 20080922
  Receipt Date: 20080728
  Transmission Date: 20090109
  Serious: Yes (Other)
  Sender: FDA-Public Use
  Company Number: US-BAYER-200812428BCC

PATIENT
  Age: 43 Year
  Sex: Female
  Weight: 56 kg

DRUGS (4)
  1. RID LICE KILLING SHAMPOO + CONDITION [Suspect]
     Indication: LICE INFESTATION
     Route: 061
     Dates: start: 20080515, end: 20080515
  2. RID LICE KILLING SHAMPOO + CONDITION [Suspect]
     Route: 061
     Dates: start: 20080524, end: 20080524
  3. RID LICE KILLING SHAMPOO + CONDITION [Suspect]
     Route: 061
     Dates: start: 20080513, end: 20080513
  4. RID HOME LICE CONTROL SPRAY [Suspect]
     Indication: LICE INFESTATION
     Dates: start: 20080501

REACTIONS (5)
  - BREAST CANCER [None]
  - LICE INFESTATION [None]
  - PRURITUS [None]
  - SKIN ULCER [None]
  - SKIN ULCER HAEMORRHAGE [None]
